FAERS Safety Report 8215747-9 (Version None)
Quarter: 2012Q1

REPORT INFORMATION
  Report Type: 
  Country: None (occurrence: None)
  Receive Date: 20120316
  Receipt Date: 20120308
  Transmission Date: 20120608
  Serious: Yes (Hospitalization)
  Sender: FDA-Public Use
  Company Number: US-BAYER-2011-110249

PATIENT
  Age: 31 Year
  Sex: Female
  Weight: 96.599 kg

DRUGS (13)
  1. BENADRYL [Concomitant]
  2. XANAX [Concomitant]
  3. DEMEROL [Concomitant]
  4. UNASYN [Concomitant]
  5. ZOFRAN [Concomitant]
  6. DILAUDID [Concomitant]
  7. MORPHINE [Concomitant]
  8. TORADOL [Concomitant]
  9. PROTONIX [Concomitant]
  10. BENTYL [Concomitant]
  11. YASMIN [Suspect]
     Dosage: UNK
     Dates: start: 20060501, end: 20060901
  12. EFFEXOR [Concomitant]
     Dosage: 37.5 MG, QD
  13. ONDANSETRON HCL [Concomitant]

REACTIONS (11)
  - PULMONARY EMBOLISM [None]
  - INJURY [None]
  - DEEP VEIN THROMBOSIS [None]
  - CHOLECYSTITIS CHRONIC [None]
  - ABDOMINAL PAIN [None]
  - ANXIETY [None]
  - GENERAL PHYSICAL HEALTH DETERIORATION [None]
  - EMOTIONAL DISTRESS [None]
  - PANCREATITIS [None]
  - CHOLELITHIASIS [None]
  - PAIN IN EXTREMITY [None]
